FAERS Safety Report 10301898 (Version 1)
Quarter: 2014Q3

REPORT INFORMATION
  Report Type: Spontaneous
  Country: IT (occurrence: None)
  Receive Date: 20140709
  Receipt Date: 20140709
  Transmission Date: 20150326
  Serious: Yes (Other)
  Sender: FDA-Public Use
  Company Number: AUR-APL-2014-07206

PATIENT
  Age: 38 Year
  Sex: Female

DRUGS (2)
  1. LEVOFLOXACIN [Suspect]
     Active Substance: LEVOFLOXACIN
     Indication: PRODUCT USED FOR UNKNOWN INDICATION
     Route: 048
     Dates: start: 20140514, end: 20140515
  2. CLARITHROMYCIN (CLARITHROMYCIN)? [Concomitant]

REACTIONS (2)
  - Palatal oedema [None]
  - Paraesthesia [None]

NARRATIVE: CASE EVENT DATE: 20140515
